FAERS Safety Report 8776708 (Version 1)
Quarter: 2012Q4

REPORT INFORMATION
  Report Type: 
  Country: US (occurrence: US)
  Receive Date: 20120910
  Receipt Date: 20120910
  Transmission Date: 20130627
  Serious: Yes (Other)
  Sender: FDA-Public Use
  Company Number: PHEH2012US017329

PATIENT
  Sex: Female

DRUGS (1)
  1. GLEEVEC [Suspect]
     Indication: CHRONIC MYELOID LEUKAEMIA
     Dosage: 400 mg, QD
     Route: 048

REACTIONS (9)
  - Mental impairment [Unknown]
  - Balance disorder [Unknown]
  - Oedema peripheral [Unknown]
  - Diarrhoea [Unknown]
  - Dizziness [Unknown]
  - Anxiety [Unknown]
  - Hypertension [Unknown]
  - Hyperhidrosis [Unknown]
  - Drug intolerance [Unknown]
